FAERS Safety Report 19414306 (Version 2)
Quarter: 2021Q3

REPORT INFORMATION
  Report Type: Report from Study
  Country: CA (occurrence: CA)
  Receive Date: 20210614
  Receipt Date: 20210708
  Transmission Date: 20211014
  Serious: Yes (Hospitalization, Other)
  Sender: FDA-Public Use
  Company Number: CA-OTSUKA-2021_019443

PATIENT
  Sex: Female

DRUGS (1)
  1. ARIPIPRAZOLE. [Suspect]
     Active Substance: ARIPIPRAZOLE
     Indication: PRODUCT USED FOR UNKNOWN INDICATION
     Dosage: 400 MG, Q4 WEEKS
     Route: 030

REACTIONS (5)
  - Concussion [Recovered/Resolved]
  - Cerebral cyst [Unknown]
  - Heart rate irregular [Not Recovered/Not Resolved]
  - Seizure [Unknown]
  - Fall [Unknown]
